FAERS Safety Report 8787072 (Version 2)
Quarter: 2015Q2

REPORT INFORMATION
  Report Type: Report from Study
  Country: US (occurrence: US)
  Receive Date: 20120914
  Receipt Date: 20150629
  Transmission Date: 20150821
  Serious: Yes (Death)
  Sender: FDA-Public Use
  Company Number: US-ROCHE-1126574

PATIENT
  Age: 74 Year
  Sex: Female
  Weight: 64 kg

DRUGS (14)
  1. SPIRIVA [Concomitant]
     Active Substance: TIOTROPIUM BROMIDE MONOHYDRATE
     Route: 065
  2. PROTONIX (UNITED STATES) [Concomitant]
     Route: 065
  3. TOPROL XL [Concomitant]
     Active Substance: METOPROLOL SUCCINATE
     Route: 065
  4. ALPRAZOLAM. [Concomitant]
     Active Substance: ALPRAZOLAM
     Dosage: PRN
     Route: 065
  5. LEVAQUIN [Concomitant]
     Active Substance: LEVOFLOXACIN
     Route: 065
  6. AVASTIN [Suspect]
     Active Substance: BEVACIZUMAB
     Indication: RENAL CANCER
     Route: 042
     Dates: start: 20051021
  7. FLUCONAZOLE. [Concomitant]
     Active Substance: FLUCONAZOLE
     Route: 065
  8. SODIUM BICARBONATE. [Concomitant]
     Active Substance: SODIUM BICARBONATE
     Route: 065
  9. AVASTIN [Suspect]
     Active Substance: BEVACIZUMAB
     Route: 042
  10. ALBUTEROL. [Concomitant]
     Active Substance: ALBUTEROL
     Route: 065
  11. TARCEVA [Suspect]
     Active Substance: ERLOTINIB HYDROCHLORIDE
     Indication: PRODUCT USED FOR UNKNOWN INDICATION
     Route: 048
  12. LASIX [Concomitant]
     Active Substance: FUROSEMIDE
     Route: 065
  13. MEDROL [Concomitant]
     Active Substance: METHYLPREDNISOLONE
     Route: 065
  14. AVASTIN [Suspect]
     Active Substance: BEVACIZUMAB
     Route: 042

REACTIONS (10)
  - Pain [Unknown]
  - Death [Fatal]
  - Hepatic enzyme increased [Unknown]
  - Pyrexia [Unknown]
  - Off label use [Unknown]
  - Diarrhoea [Recovering/Resolving]
  - Dry mouth [Unknown]
  - Asthenia [Unknown]
  - Stomatitis [Unknown]
  - Fatigue [Unknown]

NARRATIVE: CASE EVENT DATE: 20051216
